FAERS Safety Report 8484675-6 (Version None)
Quarter: 2012Q3

REPORT INFORMATION
  Report Type: 
  Country: None (occurrence: None)
  Receive Date: 20120703
  Receipt Date: 20120530
  Transmission Date: 20120928
  Serious: No
  Sender: FDA-Public Use
  Company Number: US-TEVA-333437USA

PATIENT
  Sex: Female

DRUGS (6)
  1. LAMOTRIGINE [Concomitant]
  2. ESCITALOPRAM OXALATE [Concomitant]
  3. NUVIGIL [Suspect]
     Route: 048
  4. ARIPIPRAZOLE [Concomitant]
  5. ALPRAZOLAM [Concomitant]
  6. AMITRIPTYLINE HCL [Concomitant]

REACTIONS (1)
  - BLOOD PRESSURE INCREASED [None]
